FAERS Safety Report 4283700-6 (Version None)
Quarter: 2004Q1

REPORT INFORMATION
  Report Type: 
  Country: None (occurrence: None)
  Receive Date: 20040202
  Receipt Date: 20040121
  Transmission Date: 20041129
  Serious: Yes (Hospitalization)
  Sender: FDA-Public Use
  Company Number: WAES 0401USA01950

PATIENT
  Age: 23 Year
  Sex: Female

DRUGS (5)
  1. BIOFERMIN [Concomitant]
     Route: 048
  2. PEPCID RPD [Suspect]
     Route: 048
  3. SODIUM CHLORIDE [Concomitant]
     Route: 048
  4. TICLOPIDINE HYDROCHLORIDE [Concomitant]
     Route: 048
  5. DEPAKENE [Suspect]
     Route: 048

REACTIONS (5)
  - BLOOD GLUCOSE DECREASED [None]
  - BRAIN CONTUSION [None]
  - INJURY [None]
  - POLYTRAUMATISM [None]
  - ROAD TRAFFIC ACCIDENT [None]
